FAERS Safety Report 13691080 (Version 1)
Quarter: 2017Q2

REPORT INFORMATION
  Report Type: Spontaneous
  Country: US (occurrence: US)
  Receive Date: 20170626
  Receipt Date: 20170626
  Transmission Date: 20170830
  Serious: Yes (Other)
  Sender: FDA-Public Use
  Company Number: US-PFIZER INC-2017270997

PATIENT
  Age: 73 Year
  Sex: Female
  Weight: 76 kg

DRUGS (7)
  1. ZANTAC [Concomitant]
     Active Substance: RANITIDINE HYDROCHLORIDE
     Indication: GASTROOESOPHAGEAL REFLUX DISEASE
     Dosage: 1 TABLET TWICE A DAY BY MOUTH
     Route: 048
     Dates: start: 2016
  2. XALATAN [Suspect]
     Active Substance: LATANOPROST
     Indication: GLAUCOMA
     Dosage: 1 DROP IN LEFT EYE AT BEDTIME
     Route: 047
  3. XALATAN [Suspect]
     Active Substance: LATANOPROST
     Indication: CATARACT
  4. PROTONIX [Concomitant]
     Active Substance: PANTOPRAZOLE SODIUM
  5. TYLENOL [Concomitant]
     Active Substance: ACETAMINOPHEN
     Indication: PAIN
     Dosage: 1 OR 2 CAPLET AS NEEDED FOR PAIN BY MOUTH
     Route: 048
  6. TOBRAMYCIN. [Concomitant]
     Active Substance: TOBRAMYCIN
     Dosage: ONE DROP IN LEFT EYE 4 TIMES A DAY
     Route: 047
  7. ALPHAGAN P [Concomitant]
     Active Substance: BRIMONIDINE TARTRATE
     Indication: GLAUCOMA
     Dosage: 1 DROP AT 8 IN THE MORNING, 1 DROP AT 2 IN THE AFTERNOON AND 1 DROP AT 8 AT NIGHT IN LEFT EYE
     Route: 047
     Dates: end: 201705

REACTIONS (1)
  - Cataract [Recovered/Resolved]

NARRATIVE: CASE EVENT DATE: 2016
